FAERS Safety Report 10092494 (Version 3)
Quarter: 2014Q2

REPORT INFORMATION
  Report Type: Report from Study
  Country: CA (occurrence: CA)
  Receive Date: 20140421
  Receipt Date: 20140429
  Transmission Date: 20141212
  Serious: Yes (Hospitalization, Other)
  Sender: FDA-Public Use
  Company Number: CA-ABBVIE-14P-028-1193547-00

PATIENT
  Sex: Female
  Weight: 59.93 kg

DRUGS (3)
  1. HUMIRA [Suspect]
     Indication: ANKYLOSING SPONDYLITIS
     Route: 058
     Dates: start: 20090522, end: 201401
  2. HUMIRA [Suspect]
     Route: 058
     Dates: start: 20140417
  3. ZOLOFT [Concomitant]
     Indication: DEPRESSION

REACTIONS (3)
  - Frequent bowel movements [Recovering/Resolving]
  - Faecal incontinence [Not Recovered/Not Resolved]
  - Frequent bowel movements [Not Recovered/Not Resolved]
